FAERS Safety Report 25840888 (Version 1)
Quarter: 2025Q3

REPORT INFORMATION
  Report Type: Other
  Country: GB (occurrence: GB)
  Receive Date: 20250924
  Receipt Date: 20250924
  Transmission Date: 20251020
  Serious: Yes (Other)
  Sender: MACLEODS
  Company Number: None

PATIENT

DRUGS (2)
  1. TAMSULOSIN [Suspect]
     Active Substance: TAMSULOSIN
     Indication: Dysuria
     Dosage: 400MCG ONCE A DAY IN THE MORNING
     Route: 065
     Dates: start: 20250906, end: 20250912
  2. TAMSULOSIN [Suspect]
     Active Substance: TAMSULOSIN
     Indication: Urinary retention

REACTIONS (1)
  - Lymphadenopathy [Recovering/Resolving]

NARRATIVE: CASE EVENT DATE: 20250906
